FAERS Safety Report 20211704 (Version 1)
Quarter: 2021Q4

REPORT INFORMATION
  Report Type: Spontaneous
  Country: US (occurrence: None)
  Receive Date: 20211221
  Receipt Date: 20211221
  Transmission Date: 20220304
  Serious: Yes (Hospitalization)
  Sender: FDA-Public Use
  Company Number: None

PATIENT
  Age: 68 Year
  Sex: Female
  Weight: 57.7 kg

DRUGS (3)
  1. TAXOTERE [Suspect]
     Active Substance: DOCETAXEL
     Dates: end: 20211126
  2. PERTUZUMAB [Suspect]
     Dates: end: 20211126
  3. HERCEPTIN [Suspect]
     Active Substance: TRASTUZUMAB
     Dates: end: 20211126

REACTIONS (4)
  - Arthralgia [None]
  - Erythema [None]
  - Sepsis [None]
  - Arthritis bacterial [None]

NARRATIVE: CASE EVENT DATE: 20211207
